FAERS Safety Report 8804453 (Version 1)
Quarter: 2012Q4

REPORT INFORMATION
  Report Type: 
  Country: CA (occurrence: CA)
  Receive Date: 20120923
  Receipt Date: 20120923
  Transmission Date: 20130627
  Serious: Yes (Hospitalization, Other)
  Sender: FDA-Public Use
  Company Number: CA-ABBOTT-12P-028-0976397-00

PATIENT
  Age: 58 Year
  Sex: Male

DRUGS (2)
  1. CIPRALEX [Suspect]
     Route: 048
     Dates: start: 20110912
  2. CIPRALEX [Suspect]
     Route: 048

REACTIONS (3)
  - Suicide attempt [Not Recovered/Not Resolved]
  - Anxiety [Not Recovered/Not Resolved]
  - Anger [Not Recovered/Not Resolved]
